FAERS Safety Report 9222404 (Version 1)
Quarter: 2013Q1

REPORT INFORMATION
  Report Type: Spontaneous
  Country: US (occurrence: US)
  Receive Date: 20120912
  Receipt Date: 20120912
  Transmission Date: 20140127
  Serious: No
  Sender: FDA-Public Use
  Company Number: 2012SP035462

PATIENT
  Age: 49 Year
  Sex: Male
  Weight: 97.98 kg

DRUGS (1)
  1. VICTRELIS [Suspect]
     Indication: CHRONIC HEPATITIS C
     Route: 048
     Dates: start: 20120305, end: 20120614

REACTIONS (2)
  - Platelet count decreased [None]
  - Therapeutic response decreased [None]
